FAERS Safety Report 9220873 (Version 2)
Quarter: 2013Q2

REPORT INFORMATION
  Report Type: Spontaneous
  Country: JP (occurrence: JP)
  Receive Date: 20130409
  Receipt Date: 20130605
  Transmission Date: 20140414
  Serious: Yes (Hospitalization, Other)
  Sender: FDA-Public Use
  Company Number: JP-PFIZER INC-2013106400

PATIENT
  Age: 22 Year
  Sex: Female
  Weight: 50 kg

DRUGS (10)
  1. JZOLOFT [Suspect]
     Dosage: 75 MG, SINGLE
     Route: 048
  2. HALCION [Suspect]
     Dosage: 7.5 MG, SINGLE
     Route: 048
  3. SOLANAX [Suspect]
     Dosage: 22.4 MG, SINGLE
     Route: 048
  4. LOXOPROFEN [Suspect]
     Dosage: 240 MG, SINGLE
     Route: 048
  5. TIZANIDINE [Suspect]
     Dosage: 1 MG, SINGLE
     Route: 048
  6. FLUNITRAZEPAM [Suspect]
     Dosage: 8 MG, SINGLE
     Route: 048
  7. LITHIUM CARBONATE [Suspect]
     Dosage: 800 MG, SINGLE
     Route: 048
  8. ETIZOLAM [Suspect]
     Dosage: 24 MG, SINGLE
     Route: 048
  9. ZOPICLONE [Suspect]
     Dosage: 30 MG, SINGLE
     Route: 048
  10. CHLORPROMAZINE\PROMETHAZINE [Suspect]
     Dosage: 3600 MG, SINGLE
     Route: 048

REACTIONS (7)
  - Intentional overdose [Recovered/Resolved]
  - Toxicity to various agents [Recovered/Resolved]
  - Dehydration [Recovered/Resolved]
  - Withdrawal syndrome [Recovered/Resolved]
  - Pneumonia [Recovered/Resolved]
  - Depressed level of consciousness [Recovered/Resolved]
  - Dysarthria [Recovered/Resolved]
